FAERS Safety Report 5378670-3 (Version None)
Quarter: 2007Q3

REPORT INFORMATION
  Report Type: 
  Country: None (occurrence: None)
  Receive Date: 20070705
  Receipt Date: 20070626
  Transmission Date: 20080115
  Serious: Yes (Other)
  Sender: FDA-Public Use
  Company Number: B0471965A

PATIENT
  Sex: Male

DRUGS (7)
  1. NIQUITIN CQ 4MG LOZENGE [Suspect]
     Dosage: 4MG TEN TIMES PER DAY
     Route: 002
     Dates: start: 20060426
  2. PERINDOPRIL [Concomitant]
  3. ASPIRIN [Concomitant]
  4. DIPYRAMIDOL [Concomitant]
  5. BENDROFLUMETHIAZIDE [Concomitant]
  6. ATORVASTATIN [Concomitant]
  7. VENTOLIN [Concomitant]
     Route: 055

REACTIONS (2)
  - DEPENDENCE [None]
  - NASOPHARYNGITIS [None]
